FAERS Safety Report 16145899 (Version 1)
Quarter: 2019Q2

REPORT INFORMATION
  Report Type: Spontaneous
  Country: US (occurrence: US)
  Receive Date: 20190227
  Receipt Date: 20190227
  Transmission Date: 20190711
  Serious: Yes (Other)
  Sender: FDA-Public Use
  Company Number: None

PATIENT
  Age: 72 Year
  Sex: Female
  Weight: 72.58 kg

DRUGS (8)
  1. GARLIC CAPSULE [Concomitant]
  2. CRESTOR [Suspect]
     Active Substance: ROSUVASTATIN CALCIUM
  3. VITAMIN B12 [Concomitant]
     Active Substance: CYANOCOBALAMIN
  4. ZETIA [Suspect]
     Active Substance: EZETIMIBE
     Indication: BLOOD CHOLESTEROL INCREASED
     Dosage: ?          QUANTITY:10 MG MILLIGRAM(S);?
     Dates: start: 20180803, end: 20190201
  5. VERAPAMIL [Concomitant]
     Active Substance: VERAPAMIL HYDROCHLORIDE
  6. LIPITOR [Suspect]
     Active Substance: ATORVASTATIN CALCIUM
  7. TOPORIL [Concomitant]
  8. ASPIRIN 80MG [Concomitant]

REACTIONS (5)
  - Pain in extremity [None]
  - Condition aggravated [None]
  - Back pain [None]
  - Drug withdrawal syndrome [None]
  - Chest pain [None]

NARRATIVE: CASE EVENT DATE: 20190201
